FAERS Safety Report 10449781 (Version 2)
Quarter: 2015Q1

REPORT INFORMATION
  Report Type: Spontaneous
  Country: US (occurrence: US)
  Receive Date: 20140912
  Receipt Date: 20150120
  Transmission Date: 20150720
  Serious: No
  Sender: FDA-Public Use
  Company Number: US-PFIZER INC-2014250872

PATIENT
  Sex: Female

DRUGS (16)
  1. DOXYCYCLINE MONOHYDRATE [Suspect]
     Active Substance: DOXYCYCLINE
     Dosage: UNK
  2. TOPAMAX [Suspect]
     Active Substance: TOPIRAMATE
     Dosage: UNK
  3. SYMBYAX [Suspect]
     Active Substance: FLUOXETINE HYDROCHLORIDE\OLANZAPINE
     Dosage: UNK
  4. EFFEXOR [Suspect]
     Active Substance: VENLAFAXINE HYDROCHLORIDE
     Dosage: UNK
  5. WELLBUTRIN [Suspect]
     Active Substance: BUPROPION HYDROCHLORIDE
     Dosage: UNK
  6. ASA [Suspect]
     Active Substance: ASPIRIN
     Dosage: UNK
  7. BEXTRA [Suspect]
     Active Substance: VALDECOXIB
     Dosage: UNK
  8. CYMBALTA [Suspect]
     Active Substance: DULOXETINE HYDROCHLORIDE
     Dosage: UNK
  9. SEROQUEL [Suspect]
     Active Substance: QUETIAPINE FUMARATE
     Dosage: UNK
  10. ASPIRIN. [Suspect]
     Active Substance: ASPIRIN
     Dosage: UNK
  11. ZOCOR [Suspect]
     Active Substance: SIMVASTATIN
     Dosage: UNK
  12. SEPTRA [Suspect]
     Active Substance: SULFAMETHOXAZOLE\TRIMETHOPRIM
     Dosage: UNK
  13. CECLOR [Suspect]
     Active Substance: CEFACLOR
     Dosage: UNK
  14. NOVOCAINE [Suspect]
     Active Substance: PROCAINE
     Dosage: UNK
  15. LEXAPRO [Suspect]
     Active Substance: ESCITALOPRAM OXALATE
     Dosage: UNK
  16. LESCOL [Suspect]
     Active Substance: FLUVASTATIN SODIUM
     Dosage: UNK

REACTIONS (1)
  - Drug hypersensitivity [Unknown]
